FAERS Safety Report 8531081-1 (Version None)
Quarter: 2012Q3

REPORT INFORMATION
  Report Type: 
  Country: None (occurrence: None)
  Receive Date: 20120710
  Receipt Date: 20120625
  Transmission Date: 20120928
  Serious: Yes (Death, Other)
  Sender: FDA-Public Use
  Company Number: 201206000075

PATIENT
  Age: 61 Year
  Sex: Female

DRUGS (3)
  1. INOMAX [Suspect]
     Indication: OXYGEN SATURATION INCREASED
     Dosage: 20 PPM, CONTINUOUS, INHALATION, 40 PPM, CONTINUOUS, INHALATION, 60 PPM, CONTINUOUS, INHALATION
     Route: 055
     Dates: start: 20120622, end: 20120601
  2. INOMAX [Suspect]
     Indication: OXYGEN SATURATION INCREASED
     Dosage: 20 PPM, CONTINUOUS, INHALATION, 40 PPM, CONTINUOUS, INHALATION, 60 PPM, CONTINUOUS, INHALATION
     Route: 055
     Dates: start: 20120601, end: 20120601
  3. INOMAX [Suspect]
     Indication: OXYGEN SATURATION INCREASED
     Dosage: 20 PPM, CONTINUOUS, INHALATION, 40 PPM, CONTINUOUS, INHALATION, 60 PPM, CONTINUOUS, INHALATION
     Route: 055
     Dates: start: 20120601, end: 20120623

REACTIONS (7)
  - CARDIAC ARREST [None]
  - MEDICAL DEVICE COMPLICATION [None]
  - OXYGEN SATURATION DECREASED [None]
  - COUGH [None]
  - GENERAL PHYSICAL HEALTH DETERIORATION [None]
  - HEART RATE DECREASED [None]
  - DEVICE ALARM ISSUE [None]
